FAERS Safety Report 24991358 (Version 2)
Quarter: 2025Q1

REPORT INFORMATION
  Report Type: Report from Study
  Country: BR (occurrence: BR)
  Receive Date: 20250220
  Receipt Date: 20250220
  Transmission Date: 20250409
  Serious: Yes (Hospitalization, Other)
  Sender: Unknown Manufacturer
  Company Number: BR-AstraZeneca-CH-00800866A

PATIENT

DRUGS (7)
  1. METOPROLOL SUCCINATE [Suspect]
     Active Substance: METOPROLOL SUCCINATE
     Indication: Product used for unknown indication
     Route: 048
     Dates: start: 20241226, end: 20241227
  2. METOPROLOL SUCCINATE [Suspect]
     Active Substance: METOPROLOL SUCCINATE
     Route: 048
  3. INDAPAMIDE [Suspect]
     Active Substance: INDAPAMIDE
     Indication: Product used for unknown indication
     Route: 065
  4. TRAZODONE HYDROCHLORIDE [Suspect]
     Active Substance: TRAZODONE HYDROCHLORIDE
     Indication: Product used for unknown indication
     Route: 065
  5. COAL TAR [Suspect]
     Active Substance: COAL TAR
     Indication: Product used for unknown indication
     Route: 065
  6. METICORTEN [Suspect]
     Active Substance: PREDNISONE
     Indication: Product used for unknown indication
     Route: 065
  7. EPHEDRINE HYDROCHLORIDE\GUAIFENESIN\THEOPHYLLINE [Suspect]
     Active Substance: EPHEDRINE HYDROCHLORIDE\GUAIFENESIN\THEOPHYLLINE
     Indication: Product used for unknown indication
     Route: 065

REACTIONS (2)
  - Pleural effusion [Unknown]
  - Pericardial effusion [Unknown]
